FAERS Safety Report 13427931 (Version 1)
Quarter: 2017Q2

REPORT INFORMATION
  Report Type: Spontaneous
  Country: US (occurrence: US)
  Receive Date: 20170411
  Receipt Date: 20170411
  Transmission Date: 20170830
  Serious: No
  Sender: FDA-Public Use
  Company Number: US-IMPAX LABORATORIES, INC-2014-IPXL-00061

PATIENT
  Sex: Female

DRUGS (2)
  1. DANTROLENE SODIUM. [Suspect]
     Active Substance: DANTROLENE SODIUM
     Dosage: 75 MG, TID
     Route: 065
     Dates: start: 201601
  2. DANTROLENE SODIUM. [Suspect]
     Active Substance: DANTROLENE SODIUM
     Indication: MUSCLE SPASMS
     Dosage: 50 MG, TID
     Route: 065
     Dates: start: 20130622

REACTIONS (1)
  - Drug ineffective [Not Recovered/Not Resolved]
